FAERS Safety Report 12640784 (Version 1)
Quarter: 2016Q3

REPORT INFORMATION
  Report Type: Report from Study
  Country: US (occurrence: US)
  Receive Date: 20160810
  Receipt Date: 20160810
  Transmission Date: 20161109
  Serious: Yes (Death, Hospitalization)
  Sender: FDA-Public Use
  Company Number: US-BAYER-2016-108757

PATIENT
  Age: 72 Year
  Sex: Male

DRUGS (1)
  1. ADEMPAS [Suspect]
     Active Substance: RIOCIGUAT
     Indication: PULMONARY ARTERIAL HYPERTENSION
     Dosage: 0.5 MG, TID
     Route: 048
     Dates: start: 20160512

REACTIONS (4)
  - Respiratory failure [None]
  - Chronic obstructive pulmonary disease [None]
  - Death [Fatal]
  - Pulmonary hypertension [None]

NARRATIVE: CASE EVENT DATE: 20160524
